FAERS Safety Report 16559711 (Version 2)
Quarter: 2019Q3

REPORT INFORMATION
  Report Type: Spontaneous
  Country: US (occurrence: US)
  Receive Date: 20190711
  Receipt Date: 20190805
  Transmission Date: 20191004
  Serious: No
  Sender: FDA-Public Use
  Company Number: US-PFIZER INC-2019291589

PATIENT
  Age: 75 Year
  Sex: Female
  Weight: 54.42 kg

DRUGS (10)
  1. BENAZEPRIL HYDROCHLORIDE. [Suspect]
     Active Substance: BENAZEPRIL HYDROCHLORIDE
     Indication: HYPERTENSION
     Dosage: 20 MG, 1X/DAY
     Route: 048
     Dates: start: 20170925, end: 20171010
  2. SILICON DIOXIDE, COLLOIDAL [Suspect]
     Active Substance: SILICON DIOXIDE
     Dosage: UNK
  3. SERTRALINE HCL [Suspect]
     Active Substance: SERTRALINE HYDROCHLORIDE
     Dosage: 25 MG, 1X/DAY
     Dates: start: 20170928, end: 20170930
  4. SYNTHROID [Concomitant]
     Active Substance: LEVOTHYROXINE SODIUM
     Dosage: UNK
     Dates: start: 197907
  5. HYDRALAZINE [Suspect]
     Active Substance: HYDRALAZINE HYDROCHLORIDE
     Indication: HYPERTENSION
     Dosage: 12.5 MG, 2X/DAY (25MG 1/2 BY MOUTH)
     Route: 048
     Dates: start: 20171012, end: 20171017
  6. SODIUM STARCH GLYCOLATE TYPE A POTATO [Suspect]
     Active Substance: SODIUM STARCH GLYCOLATE TYPE A POTATO
     Dosage: UNK
  7. METOPROLOL SUCCINATE. [Suspect]
     Active Substance: METOPROLOL SUCCINATE
     Indication: HYPERTENSION
     Dosage: 50 MG, 1X/DAY
     Dates: start: 20170925, end: 20171009
  8. ESCITALOPRAM [Suspect]
     Active Substance: ESCITALOPRAM OXALATE
     Indication: ANXIETY
     Dosage: 5 MG, 1X/DAY (10MG 1/2 PILL AT BED)
     Dates: start: 20171018, end: 20171203
  9. ESCITALOPRAM [Suspect]
     Active Substance: ESCITALOPRAM OXALATE
     Dosage: 5 MG, 1X/DAY
     Dates: start: 20171122, end: 20171203
  10. PREMARIN [Concomitant]
     Active Substance: ESTROGENS, CONJUGATED
     Dosage: UNK
     Dates: start: 201604

REACTIONS (4)
  - Rash macular [Recovered/Resolved]
  - Urticaria [Recovered/Resolved]
  - Reaction to excipient [Unknown]
  - Pain in extremity [Recovered/Resolved]

NARRATIVE: CASE EVENT DATE: 201709
